FAERS Safety Report 12864367 (Version 1)
Quarter: 2016Q4

REPORT INFORMATION
  Report Type: Spontaneous
  Country: US (occurrence: US)
  Receive Date: 20161020
  Receipt Date: 20161020
  Transmission Date: 20170207
  Serious: No
  Sender: FDA-Public Use
  Company Number: US-TEVA-614773USA

PATIENT
  Age: 20 Year
  Sex: Female
  Weight: 77.18 kg

DRUGS (1)
  1. ADIPEX-P [Suspect]
     Active Substance: PHENTERMINE HYDROCHLORIDE
     Indication: OBESITY
     Route: 065
     Dates: start: 201509

REACTIONS (5)
  - Hyperhidrosis [Unknown]
  - Disturbance in attention [Unknown]
  - Hot flush [Unknown]
  - Energy increased [Unknown]
  - Feeling abnormal [Unknown]

NARRATIVE: CASE EVENT DATE: 201509
